FAERS Safety Report 5616612-3 (Version None)
Quarter: 2008Q1

REPORT INFORMATION
  Report Type: 
  Country: None (occurrence: None)
  Receive Date: 20080207
  Receipt Date: 20071004
  Transmission Date: 20080703
  Serious: No
  Sender: FDA-Public Use
  Company Number: A0686126A

PATIENT
  Age: 56 Year
  Sex: Female

DRUGS (4)
  1. PAXIL CR [Suspect]
     Indication: DEPRESSION
     Dosage: 25MG PER DAY
     Route: 048
     Dates: end: 20070901
  2. METFORMIN HCL [Concomitant]
  3. ACTOS [Concomitant]
  4. LISINOPRIL [Concomitant]

REACTIONS (3)
  - CRYING [None]
  - DEPRESSED MOOD [None]
  - DRUG INEFFECTIVE [None]
